FAERS Safety Report 7878386-5 (Version None)
Quarter: 2011Q4

REPORT INFORMATION
  Report Type: 
  Country: None (occurrence: None)
  Receive Date: 20111028
  Receipt Date: 20111017
  Transmission Date: 20120403
  Serious: Yes (Other)
  Sender: FDA-Public Use
  Company Number: 2011SP048890

PATIENT
  Age: 40 Year
  Sex: Male
  Weight: 78 kg

DRUGS (17)
  1. TEMODAL [Suspect]
     Dosage: 75 MG/M2; QD;PO ; 150 MG/M2;QD;PO
     Route: 048
     Dates: start: 20080730, end: 20080803
  2. TEMODAL [Suspect]
     Dosage: 75 MG/M2; QD;PO ; 150 MG/M2;QD;PO
     Route: 048
     Dates: start: 20101229, end: 20110102
  3. TEMODAL [Suspect]
     Dosage: 75 MG/M2; QD;PO ; 150 MG/M2;QD;PO
     Route: 048
     Dates: start: 20110323, end: 20110327
  4. TEMODAL [Suspect]
     Dosage: 75 MG/M2; QD;PO ; 150 MG/M2;QD;PO
     Route: 048
     Dates: start: 20080110, end: 20080114
  5. TEMODAL [Suspect]
     Dosage: 75 MG/M2; QD;PO ; 150 MG/M2;QD;PO
     Route: 048
     Dates: start: 20090218, end: 20090222
  6. TEMODAL [Suspect]
     Dosage: 75 MG/M2; QD;PO ; 150 MG/M2;QD;PO
     Route: 048
     Dates: start: 20090812, end: 20090816
  7. TEMODAL [Suspect]
     Dosage: 75 MG/M2; QD;PO ; 150 MG/M2;QD;PO
     Route: 048
     Dates: start: 20110223, end: 20110227
  8. TEMODAL [Suspect]
     Dosage: 75 MG/M2; QD;PO ; 150 MG/M2;QD;PO
     Route: 048
     Dates: start: 20070906, end: 20070910
  9. TEMODAL [Suspect]
     Dosage: 75 MG/M2; QD;PO ; 150 MG/M2;QD;PO
     Route: 048
     Dates: start: 20080306, end: 20080310
  10. TEMODAL [Suspect]
     Dosage: 75 MG/M2; QD;PO ; 150 MG/M2;QD;PO
     Route: 048
     Dates: start: 20101201, end: 20101205
  11. TEMODAL [Suspect]
     Dosage: 75 MG/M2; QD;PO ; 150 MG/M2;QD;PO
     Route: 048
     Dates: start: 20080604, end: 20080608
  12. TEMODAL [Suspect]
     Dosage: 75 MG/M2; QD;PO ; 150 MG/M2;QD;PO
     Route: 048
     Dates: start: 20091028, end: 20091101
  13. TEMODAL [Suspect]
     Dosage: 75 MG/M2; QD;PO ; 150 MG/M2;QD;PO
     Route: 048
     Dates: start: 20110223, end: 20110227
  14. TEMODAL [Suspect]
     Dosage: 75 MG/M2; QD;PO ; 150 MG/M2;QD;PO
     Route: 048
     Dates: start: 20110420, end: 20110424
  15. TEMODAL [Suspect]
     Dosage: 75 MG/M2; QD;PO ; 150 MG/M2;QD;PO
     Route: 048
     Dates: start: 20070604, end: 20070715
  16. TEMODAL [Suspect]
     Dosage: 75 MG/M2; QD;PO ; 150 MG/M2;QD;PO
     Route: 048
     Dates: start: 20090520, end: 20090524
  17. TEMODAL [Suspect]
     Dosage: 75 MG/M2; QD;PO ; 150 MG/M2;QD;PO
     Route: 048
     Dates: start: 20091207, end: 20100711

REACTIONS (4)
  - CONDITION AGGRAVATED [None]
  - BRAIN OEDEMA [None]
  - VISUAL IMPAIRMENT [None]
  - ANAPLASTIC ASTROCYTOMA [None]
